FAERS Safety Report 10231317 (Version 1)
Quarter: 2014Q2

REPORT INFORMATION
  Report Type: Spontaneous
  Country: IT (occurrence: IT)
  Receive Date: 20140611
  Receipt Date: 20140611
  Transmission Date: 20141212
  Serious: Yes (Other)
  Sender: FDA-Public Use
  Company Number: IT-GLAXOSMITHKLINE-B1002654A

PATIENT
  Age: 63 Year
  Sex: Female

DRUGS (3)
  1. ALIFLUS [Suspect]
     Indication: ASTHMA
     Route: 065
     Dates: start: 20140101, end: 20140409
  2. CLARITHROMYCIN [Suspect]
     Indication: EAR INFECTION
     Dosage: 1000MG PER DAY
     Route: 048
     Dates: start: 20140407, end: 20140409
  3. COTAREG [Concomitant]

REACTIONS (3)
  - Palpitations [Recovering/Resolving]
  - Blood pressure fluctuation [Recovering/Resolving]
  - Chest pain [Recovering/Resolving]
